FAERS Safety Report 23668665 (Version 1)
Quarter: 2024Q1

REPORT INFORMATION
  Report Type: Spontaneous
  Country: US (occurrence: None)
  Receive Date: 20240322
  Receipt Date: 20240322
  Transmission Date: 20240410
  Serious: Yes (Hospitalization)
  Sender: FDA-Public Use
  Company Number: None

PATIENT
  Age: 47 Year
  Sex: Female
  Weight: 55.34 kg

DRUGS (14)
  1. AMOXICILLIN [Suspect]
     Active Substance: AMOXICILLIN
     Indication: Toothache
     Dosage: 1 TABLET EVEEEERY 8 HOURS  TAKEN BY MOUTH
     Route: 048
     Dates: start: 20240216, end: 20240216
  2. AMOXICILLIN [Suspect]
     Active Substance: AMOXICILLIN
     Indication: Infection
  3. CLINDAMYCIN [Suspect]
     Active Substance: CLINDAMYCIN
  4. Pure Synergy PureNatal Multivitamin [Concomitant]
  5. Pure Synergy Vita-Min-Herb [Concomitant]
  6. Pure Synergy Choline Complex [Concomitant]
  7. Mindbodygreen Omega-3 potency+ [Concomitant]
  8. Nordic Naturals CoQ10 Ubiquinol [Concomitant]
  9. Triquetra Whole Food Magnesium [Concomitant]
  10. Cilantro [Concomitant]
  11. DIATOMACEOUS EARTH [Concomitant]
  12. Health Aid OralProbio Probiotic Supplement [Concomitant]
  13. StellaLife Healthy Mouth Oral Pre+Probiotic [Concomitant]
  14. StellaLife Healthy Gut with Spore Pro + Post ProBiotic [Concomitant]

REACTIONS (4)
  - Swelling face [None]
  - Pharyngeal swelling [None]
  - Swollen tongue [None]
  - Diarrhoea [None]

NARRATIVE: CASE EVENT DATE: 20240216
